FAERS Safety Report 7027229-0 (Version None)
Quarter: 2010Q4

REPORT INFORMATION
  Report Type: 
  Country: None (occurrence: None)
  Receive Date: 20101004
  Receipt Date: 20100920
  Transmission Date: 20110411
  Serious: Yes (Other)
  Sender: FDA-Public Use
  Company Number: DE-MYLANLABS-2010S1017202

PATIENT
  Age: 30 Year
  Sex: Male

DRUGS (7)
  1. SODIUM OXYBATE [Suspect]
     Indication: DRUG ABUSE
     Route: 065
  2. BUTYROLACTONE [Suspect]
     Indication: DRUG ABUSE
     Route: 065
  3. DOXEPIN HCL [Suspect]
     Indication: DRUG ABUSE
     Route: 065
  4. FLUNITRAZEPAM [Suspect]
     Indication: DRUG ABUSE
     Route: 065
  5. VENLAFAXINE HCL [Concomitant]
     Dosage: EVERY EVENING
     Route: 065
  6. TRUVADA [Concomitant]
     Dosage: EVERY EVENING
     Route: 065
  7. VIRAMUNE [Concomitant]
     Dosage: EVERY EVENING
     Route: 065

REACTIONS (2)
  - CONVULSION [None]
  - DRUG ABUSE [None]
